FAERS Safety Report 5604859-1 (Version None)
Quarter: 2008Q1

REPORT INFORMATION
  Report Type: 
  Country: None (occurrence: None)
  Receive Date: 20080128
  Receipt Date: 20080116
  Transmission Date: 20080703
  Serious: Yes (Other)
  Sender: FDA-Public Use
  Company Number: CA-ELI_LILLY_AND_COMPANY-CA200706002620

PATIENT
  Sex: Female

DRUGS (2)
  1. EVISTA [Suspect]
     Indication: OSTEOPOROSIS
     Dosage: 60 MG, DAILY (1/D)
     Route: 048
     Dates: start: 20070101, end: 20070101
  2. EVISTA [Suspect]
     Dosage: 60 MG, DAILY (1/D)
     Route: 048
     Dates: start: 20070101, end: 20070408

REACTIONS (14)
  - BACK PAIN [None]
  - CONTUSION [None]
  - DIVERTICULITIS [None]
  - FLUID RETENTION [None]
  - LOWER LIMB DEFORMITY [None]
  - LUNG DISORDER [None]
  - LYMPHADENOPATHY [None]
  - LYMPHOMA [None]
  - OEDEMA PERIPHERAL [None]
  - PHLEBITIS [None]
  - SENSATION OF HEAVINESS [None]
  - SKIN DISCOLOURATION [None]
  - URINARY RETENTION [None]
  - URINE OUTPUT DECREASED [None]
